FAERS Safety Report 12280400 (Version 1)
Quarter: 2016Q2

REPORT INFORMATION
  Report Type: Report from Study
  Country: CA (occurrence: CA)
  Receive Date: 20160419
  Receipt Date: 20160419
  Transmission Date: 20160815
  Serious: Yes (Other)
  Sender: FDA-Public Use
  Company Number: CA-ROCHE-1509238

PATIENT
  Age: 57 Year
  Sex: Female

DRUGS (9)
  1. ERDOSTEINE [Concomitant]
     Active Substance: ERDOSTEINE
  2. ALENDRONATE [Concomitant]
     Active Substance: ALENDRONATE SODIUM
  3. ACTEMRA [Suspect]
     Active Substance: TOCILIZUMAB
     Route: 042
     Dates: start: 20150515
  4. COUMADIN [Concomitant]
     Active Substance: WARFARIN SODIUM
  5. ACTEMRA [Suspect]
     Active Substance: TOCILIZUMAB
     Route: 042
     Dates: start: 20150309
  6. OMEPRAZOLE. [Concomitant]
     Active Substance: OMEPRAZOLE
  7. NAPROSYN [Concomitant]
     Active Substance: NAPROXEN
     Route: 065
  8. ACTEMRA [Suspect]
     Active Substance: TOCILIZUMAB
     Indication: RHEUMATOID ARTHRITIS
     Route: 042
     Dates: start: 20130517
  9. PREDNISONE. [Concomitant]
     Active Substance: PREDNISONE

REACTIONS (5)
  - Headache [Recovered/Resolved]
  - Synovitis [Unknown]
  - Oedema peripheral [Unknown]
  - Musculoskeletal stiffness [Unknown]
  - Depressive symptom [Recovering/Resolving]

NARRATIVE: CASE EVENT DATE: 201501
